FAERS Safety Report 12919403 (Version 1)
Quarter: 2016Q4

REPORT INFORMATION
  Report Type: Spontaneous
  Country: US (occurrence: US)
  Receive Date: 20161103
  Receipt Date: 20161103
  Transmission Date: 20170207
  Serious: No
  Sender: FDA-Public Use
  Company Number: None

PATIENT
  Age: 61 Year
  Sex: Male

DRUGS (1)
  1. OLYSIO [Suspect]
     Active Substance: SIMEPREVIR
     Indication: ACUTE HEPATITIS C

REACTIONS (5)
  - Hyperaesthesia [None]
  - Fatigue [None]
  - Dyspnoea [None]
  - Skin burning sensation [None]
  - Blister [None]

NARRATIVE: CASE EVENT DATE: 20161103
